FAERS Safety Report 14612888 (Version 2)
Quarter: 2018Q2

REPORT INFORMATION
  Report Type: Spontaneous
  Country: GB (occurrence: GB)
  Receive Date: 20180308
  Receipt Date: 20180601
  Transmission Date: 20180711
  Serious: Yes (Other)
  Sender: FDA-Public Use
  Company Number: GB-JNJFOC-20180116422

PATIENT
  Age: 44 Year
  Sex: Male

DRUGS (2)
  1. PREGABALIN. [Suspect]
     Active Substance: PREGABALIN
     Indication: PRODUCT USED FOR UNKNOWN INDICATION
     Dosage: BETWEEN FEBRUARY 2017 AND MAY 2017
     Route: 065
     Dates: start: 20170201, end: 20170501
  2. METHYLPHENIDATE. [Suspect]
     Active Substance: METHYLPHENIDATE
     Indication: PRODUCT USED FOR UNKNOWN INDICATION
     Dosage: BETWEEN FEBRUARY 2017 AND MAY 2017
     Route: 065
     Dates: start: 20170201, end: 20170501

REACTIONS (2)
  - Drug abuse [Unknown]
  - Loss of consciousness [Recovered/Resolved]
